FAERS Safety Report 6071628-0 (Version None)
Quarter: 2009Q1

REPORT INFORMATION
  Report Type: 
  Country: None (occurrence: None)
  Receive Date: 20090209
  Receipt Date: 20090209
  Transmission Date: 20090719
  Serious: Yes (Life-Threatening, Hospitalization, Disabling)
  Sender: FDA-Public Use
  Company Number: None

PATIENT
  Sex: Female
  Weight: 72.5755 kg

DRUGS (1)
  1. ACTONEL [Suspect]
     Indication: OSTEOPENIA
     Dosage: 150 MG 1 PER M O ORAL
     Route: 048
     Dates: start: 20081104

REACTIONS (6)
  - CHEST PAIN [None]
  - DIARRHOEA [None]
  - DISORIENTATION [None]
  - MYALGIA [None]
  - NAUSEA [None]
  - PAIN IN JAW [None]
